FAERS Safety Report 6003705-4 (Version None)
Quarter: 2008Q4

REPORT INFORMATION
  Report Type: 
  Country: None (occurrence: None)
  Receive Date: 20081216
  Receipt Date: 20081204
  Transmission Date: 20090506
  Serious: Yes (Life-Threatening)
  Sender: FDA-Public Use
  Company Number: SK-PURDUE-DEU_2008_0004889

PATIENT
  Age: 85 Year
  Sex: Male
  Weight: 63 kg

DRUGS (6)
  1. PALLADONE - SR 2 MG [Suspect]
     Indication: DRUG USE FOR UNKNOWN INDICATION
     Dosage: 2 MG, BID
     Route: 048
  2. INSULIN                            /00646001/ [Suspect]
  3. CHONDROSULF [Suspect]
  4. ASENTRA [Suspect]
  5. ALPHA D3 [Suspect]
  6. TRALGIT [Suspect]

REACTIONS (1)
  - BLOOD GLUCOSE INCREASED [None]
